FAERS Safety Report 23059169 (Version 5)
Quarter: 2025Q4

REPORT INFORMATION
  Report Type: Spontaneous
  Country: EU (occurrence: EU)
  Receive Date: 20231012
  Receipt Date: 20251024
  Transmission Date: 20260117
  Serious: Yes (Other)
  Sender: MYLAN
  Company Number: EU-SA-2023SA289127

PATIENT
  Age: 48 Year
  Sex: Female

DRUGS (3)
  1. DOCETAXEL [Suspect]
     Active Substance: DOCETAXEL
     Indication: Breast cancer
     Dosage: 4 CYCLICAL (QCY)
  2. PACLITAXEL [Suspect]
     Active Substance: PACLITAXEL
     Indication: Breast cancer recurrent
     Dosage: UNK CYCLICAL (QCY)
  3. DEXAMETHASONE [Concomitant]
     Active Substance: DEXAMETHASONE
     Indication: Breast cancer
     Dosage: UNK (CYCLICAL), QCY

REACTIONS (5)
  - Musculoskeletal stiffness [Recovered/Resolved]
  - Skin hypertrophy [Recovered/Resolved]
  - Skin oedema [Recovered/Resolved]
  - Oedema peripheral [Recovered/Resolved]
  - Scleroderma-like reaction [Recovered/Resolved]
